FAERS Safety Report 25897326 (Version 1)
Quarter: 2025Q4

REPORT INFORMATION
  Report Type: Spontaneous
  Country: US (occurrence: None)
  Receive Date: 20251008
  Receipt Date: 20251008
  Transmission Date: 20260118
  Serious: No
  Sender: FDA-CTU
  Company Number: None

PATIENT
  Age: 25 Year
  Sex: Female
  Weight: 120.6 kg

DRUGS (1)
  1. SAPROPTERIN DIHYDROCHLORIDE [Suspect]
     Active Substance: SAPROPTERIN DIHYDROCHLORIDE
     Indication: Phenylketonuria
     Dosage: FREQUENCY : DAILY;?
     Route: 048
     Dates: start: 20251008

REACTIONS (2)
  - Product prescribing error [None]
  - Exposure during pregnancy [None]

NARRATIVE: CASE EVENT DATE: 20251008
